FAERS Safety Report 9682016 (Version 5)
Quarter: 2013Q4

REPORT INFORMATION
  Report Type: Spontaneous
  Country: FR (occurrence: FR)
  Receive Date: 20131111
  Receipt Date: 20131227
  Transmission Date: 20140711
  Serious: Yes (Hospitalization)
  Sender: FDA-Public Use
  Company Number: FR-PFIZER INC-2013315724

PATIENT
  Age: 92 Year
  Sex: Female
  Weight: 55 kg

DRUGS (11)
  1. XALATAN [Suspect]
     Dosage: 1 GTT IN EACH EYE, DAILY
     Route: 047
  2. EUPANTOL [Suspect]
     Dosage: 20 MG, 1X/DAY
     Route: 048
     Dates: end: 20131023
  3. PRADAXA [Suspect]
     Indication: ATRIAL FIBRILLATION
     Dosage: 75 MG, 2X/DAY
     Route: 048
     Dates: end: 20131024
  4. COVERAM [Suspect]
     Dosage: 5 MG, 1X/DAY
     Route: 048
     Dates: end: 20131023
  5. PHYSIOTENS [Suspect]
     Dosage: 0.2 MG, DAILY
     Route: 048
  6. LASILIX [Suspect]
     Dosage: 40 MG, DAILY
     Route: 048
  7. BETASERC [Suspect]
     Dosage: 25 MG, 2X/DAY
     Route: 048
  8. TANGANIL [Suspect]
     Dosage: 500 MG, 3X/DAY
     Route: 048
  9. OROCAL VITAMIN D [Suspect]
     Dosage: 1 DF, 1X/DAY
     Route: 048
  10. DOLIPRANE [Suspect]
     Dosage: 500 MG, DAILY
     Route: 048
  11. VOLTARENE [Suspect]
     Dosage: 1 DF (APPLICATION) 3X/DAILY
     Route: 061

REACTIONS (3)
  - Anaemia [Not Recovered/Not Resolved]
  - Faeces discoloured [Recovered/Resolved]
  - Gingival bleeding [Recovered/Resolved]
